FAERS Safety Report 7793465-9 (Version None)
Quarter: 2011Q4

REPORT INFORMATION
  Report Type: 
  Country: None (occurrence: None)
  Receive Date: 20111003
  Receipt Date: 20110927
  Transmission Date: 20120403
  Serious: Yes (Life-Threatening, Other)
  Sender: FDA-Public Use
  Company Number: US-ASTRAZENECA-2011SE58200

PATIENT
  Age: 69 Year
  Sex: Male
  Weight: 79.9 kg

DRUGS (10)
  1. AMIODARONE HCL [Concomitant]
     Indication: ARRHYTHMIA
     Route: 048
  2. FOLIC ACID [Concomitant]
     Indication: VITAMIN SUPPLEMENTATION
     Route: 048
  3. FLEXERIL [Concomitant]
     Indication: MUSCLE RELAXANT THERAPY
     Route: 048
  4. ASPIRIN [Concomitant]
     Indication: ANTIPLATELET THERAPY
     Route: 048
  5. MIDODRINE HYDROCHLORIDE [Concomitant]
     Indication: DIALYSIS
     Route: 048
  6. RENAGEL [Concomitant]
     Indication: BLOOD PHOSPHORUS ABNORMAL
     Route: 048
  7. ALLOPURINOL [Concomitant]
     Indication: GOUT
     Route: 048
  8. TRAMADOL HCL [Concomitant]
     Indication: PAIN
     Route: 048
  9. NEXIUM [Suspect]
     Indication: GASTROOESOPHAGEAL REFLUX PROPHYLAXIS
     Route: 048
     Dates: start: 19900101, end: 20110501
  10. VITAMIN E [Concomitant]
     Indication: VITAMIN SUPPLEMENTATION
     Dosage: 400 UNITS, DAILY, TWO TIMES A DAY
     Route: 048

REACTIONS (7)
  - CARDIAC ARREST [None]
  - CARDIAC FAILURE CONGESTIVE [None]
  - ANAEMIA [None]
  - INCORRECT DRUG ADMINISTRATION DURATION [None]
  - RENAL FAILURE CHRONIC [None]
  - DYSURIA [None]
  - BRONCHITIS [None]
